FAERS Safety Report 5953004-1 (Version None)
Quarter: 2008Q4

REPORT INFORMATION
  Report Type: 
  Country: None (occurrence: None)
  Receive Date: 20081114
  Receipt Date: 20080721
  Transmission Date: 20090506
  Serious: No
  Sender: FDA-Public Use
  Company Number: US-BRISTOL-MYERS SQUIBB COMPANY-14270706

PATIENT
  Age: 4 Decade
  Sex: Female

DRUGS (2)
  1. IXEMPRA FOR INJ [Suspect]
     Indication: BREAST CANCER METASTATIC
     Dates: start: 20080401
  2. BONIVA [Suspect]
     Dosage: BONIVIA WAS DISCONTINUED

REACTIONS (1)
  - PAIN [None]
